FAERS Safety Report 15290115 (Version 1)
Quarter: 2018Q3

REPORT INFORMATION
  Report Type: Report from Study
  Country: CA (occurrence: CA)
  Receive Date: 20180817
  Receipt Date: 20180817
  Transmission Date: 20181010
  Serious: Yes (Other)
  Sender: FDA-Public Use
  Company Number: CA-JNJFOC-20180814817

PATIENT
  Age: 64 Year
  Sex: Male

DRUGS (3)
  1. ADALAT CC [Concomitant]
     Active Substance: NIFEDIPINE
     Dosage: STRENGTH = 60 MG
     Route: 048
  2. ALLOPURINOL. [Concomitant]
     Active Substance: ALLOPURINOL
     Dosage: STRENGTH = 100 MG
     Route: 048
  3. IMBRUVICA [Suspect]
     Active Substance: IBRUTINIB
     Indication: CHRONIC LYMPHOCYTIC LEUKAEMIA
     Dosage: STRENGTH = 140 MG
     Route: 048
     Dates: start: 20180622, end: 20180810

REACTIONS (1)
  - Ocular retrobulbar haemorrhage [Not Recovered/Not Resolved]

NARRATIVE: CASE EVENT DATE: 20180807
